FAERS Safety Report 24421813 (Version 1)
Quarter: 2024Q4

REPORT INFORMATION
  Report Type: Spontaneous
  Country: CA (occurrence: US)
  Receive Date: 20241010
  Receipt Date: 20241010
  Transmission Date: 20250115
  Serious: Yes (Disabling, Other)
  Sender: STRIDES
  Company Number: CA-STRIDES ARCOLAB LIMITED-2024SP013020

PATIENT

DRUGS (3)
  1. PREDNISOLONE [Suspect]
     Active Substance: PREDNISOLONE
     Indication: Chorioretinopathy
     Dosage: UNK
     Route: 048
  2. TRIAMCINOLONE [Suspect]
     Active Substance: TRIAMCINOLONE
     Indication: Chorioretinopathy
     Dosage: UNK
     Route: 031
  3. TRIAMCINOLONE [Suspect]
     Active Substance: TRIAMCINOLONE
     Dosage: UNK, RE-INITIATED
     Route: 031

REACTIONS (5)
  - Choroidal osteoma [Recovered/Resolved]
  - Condition aggravated [Recovered/Resolved]
  - Blindness [Unknown]
  - Choroidal neovascularisation [Recovered/Resolved]
  - Retinal haemorrhage [Recovered/Resolved]
